FAERS Safety Report 15153139 (Version 2)
Quarter: 2018Q3

REPORT INFORMATION
  Report Type: Spontaneous
  Country: US (occurrence: US)
  Receive Date: 20180717
  Receipt Date: 20180813
  Transmission Date: 20181010
  Serious: No
  Sender: FDA-Public Use
  Company Number: US-PFIZER INC-2018028426

PATIENT
  Age: 69 Year
  Sex: Male
  Weight: 65.32 kg

DRUGS (5)
  1. LYRICA [Suspect]
     Active Substance: PREGABALIN
     Dosage: 100 MG, TWICE A DAY
  2. COUMADIN [Concomitant]
     Active Substance: WARFARIN SODIUM
     Dosage: 4.5 MG, FOR OTHER TWO DAYS
  3. LYRICA [Suspect]
     Active Substance: PREGABALIN
     Indication: NEURALGIA
     Dosage: 75 MG, TWICE DAILY (MORNING AND NIGHT)
     Dates: start: 2016
  4. LYRICA [Suspect]
     Active Substance: PREGABALIN
     Dosage: 100MG IN THE MORNING AND 75 AT NIGHT
  5. COUMADIN [Concomitant]
     Active Substance: WARFARIN SODIUM
     Indication: ANTICOAGULANT THERAPY
     Dosage: 3 MG, TAKEN FOR 5 DAYS
     Dates: start: 1989

REACTIONS (5)
  - Malaise [Unknown]
  - Insomnia [Unknown]
  - Intentional product use issue [Unknown]
  - Headache [Unknown]
  - Pain [Unknown]
